FAERS Safety Report 16159084 (Version 1)
Quarter: 2019Q2

REPORT INFORMATION
  Report Type: Report from Study
  Country: None (occurrence: US)
  Receive Date: 20190404
  Receipt Date: 20190404
  Transmission Date: 20190711
  Serious: Yes (Other)
  Sender: FDA-Public Use
  Company Number: US-ABBVIE-19K-163-2687991-00

PATIENT
  Age: 76 Year
  Sex: Female

DRUGS (1)
  1. HUMIRA [Suspect]
     Active Substance: ADALIMUMAB
     Indication: PSORIASIS
     Route: 058
     Dates: start: 201812

REACTIONS (4)
  - Injection site pain [Recovered/Resolved]
  - Abdominal operation [Unknown]
  - Psoriasis [Not Recovered/Not Resolved]
  - Scar [Unknown]

NARRATIVE: CASE EVENT DATE: 20190329
